FAERS Safety Report 21751943 (Version 1)
Quarter: 2022Q4

REPORT INFORMATION
  Report Type: Spontaneous
  Country: GB (occurrence: GB)
  Receive Date: 20221220
  Receipt Date: 20221220
  Transmission Date: 20230112
  Serious: Yes (Other)
  Sender: FDA-Public Use
  Company Number: GB-MHRA-TPP25316108C8726798YC1670241937387

PATIENT
  Age: 68 Year
  Sex: Female
  Weight: 106 kg

DRUGS (7)
  1. NAPROXEN [Suspect]
     Active Substance: NAPROXEN
     Indication: Ill-defined disorder
     Dosage: UNK
     Route: 065
     Dates: start: 20221205
  2. CODEINE PHOSPHATE [Concomitant]
     Active Substance: CODEINE PHOSPHATE
     Indication: Ill-defined disorder
     Dosage: UNK(ONE OR TWO TO BE TAKEN UP TO FOUR TIMES DAILY)
     Route: 065
     Dates: start: 20190524
  3. FLUCLOXACILLIN [Concomitant]
     Active Substance: FLUCLOXACILLIN
     Indication: Ill-defined disorder
     Dosage: UNK(ONE TO BE TAKEN FOUR TIMES A DAY, FOR 7 DAYS, T...)
     Route: 065
     Dates: start: 20221129
  4. LOSARTAN [Concomitant]
     Active Substance: LOSARTAN
     Indication: Ill-defined disorder
     Dosage: UNK(TAKE ONE EVERY MORNING TO REDUCE BLOOD PRESSURE...)
     Route: 065
     Dates: start: 20180430
  5. NAPROXEN [Concomitant]
     Active Substance: NAPROXEN
     Indication: Ill-defined disorder
     Dosage: UNK(ONE TO BE TAKEN TWICE DAILY WHEN REQUIRED FOR P...)
     Route: 065
     Dates: start: 20221129
  6. OMEPRAZOLE [Concomitant]
     Active Substance: OMEPRAZOLE
     Indication: Ill-defined disorder
     Dosage: UNK(TAKE ONE DAILY)
     Route: 065
     Dates: start: 20220927
  7. ACETAMINOPHEN [Concomitant]
     Active Substance: ACETAMINOPHEN
     Indication: Ill-defined disorder
     Dosage: UNK(ONE TO TWO TO BE TAKEN FOUR TIMES A DAY AS REQU...)
     Route: 065
     Dates: start: 20180430

REACTIONS (1)
  - Pharyngeal swelling [Recovering/Resolving]

NARRATIVE: CASE EVENT DATE: 20221205
